FAERS Safety Report 21041668 (Version 5)
Quarter: 2022Q4

REPORT INFORMATION
  Report Type: Spontaneous
  Country: US (occurrence: US)
  Receive Date: 20220705
  Receipt Date: 20221117
  Transmission Date: 20230113
  Serious: No
  Sender: FDA-Public Use
  Company Number: US-UNITED THERAPEUTICS-UNT-2022-014548

PATIENT
  Sex: Female

DRUGS (3)
  1. REMODULIN [Suspect]
     Active Substance: TREPROSTINIL
     Indication: Pulmonary arterial hypertension
     Dosage: UNK, CONTINUING
     Route: 058
     Dates: start: 20220323
  2. REMODULIN [Suspect]
     Active Substance: TREPROSTINIL
     Dosage: 0.0491 ?G/KG, CONTINUING (AT AN INFUSION RATE OF 0.040 ML/HOUR)
     Route: 058
     Dates: start: 2022
  3. REMODULIN [Suspect]
     Active Substance: TREPROSTINIL
     Dosage: UNK (DOSE INCREASED), CONTINUING
     Route: 058
     Dates: start: 20220621

REACTIONS (8)
  - Dyspnoea [Unknown]
  - Infusion site pain [Recovered/Resolved]
  - Wheezing [Recovering/Resolving]
  - Pain in extremity [Unknown]
  - Diarrhoea [Not Recovered/Not Resolved]
  - Nausea [Unknown]
  - Neuralgia [Unknown]
  - Infusion site irritation [Unknown]

NARRATIVE: CASE EVENT DATE: 20220101
